FAERS Safety Report 20399979 (Version 2)
Quarter: 2022Q1

REPORT INFORMATION
  Report Type: Spontaneous
  Country: US (occurrence: US)
  Receive Date: 20220131
  Receipt Date: 20220201
  Transmission Date: 20220423
  Serious: No
  Sender: FDA-Public Use
  Company Number: US-ABBVIE-21K-163-4014563-00

PATIENT
  Age: 40 Year
  Sex: Male
  Weight: 81.720 kg

DRUGS (4)
  1. HUMIRA [Suspect]
     Active Substance: ADALIMUMAB
     Indication: Crohn^s disease
     Route: 058
     Dates: start: 201810
  2. HUMIRA [Suspect]
     Active Substance: ADALIMUMAB
     Route: 058
  3. COLESTIPOL [Concomitant]
     Active Substance: COLESTIPOL
     Indication: Diarrhoea
  4. PERCOCET [Concomitant]
     Active Substance: ACETAMINOPHEN\OXYCODONE HYDROCHLORIDE
     Indication: Pain

REACTIONS (6)
  - Cough [Recovered/Resolved]
  - Malaise [Recovered/Resolved]
  - Tremor [Recovered/Resolved]
  - Fatigue [Recovered/Resolved]
  - Chills [Recovered/Resolved]
  - Vomiting [Recovered/Resolved]

NARRATIVE: CASE EVENT DATE: 20210719
